FAERS Safety Report 25940845 (Version 1)
Quarter: 2025Q4

REPORT INFORMATION
  Report Type: Spontaneous
  Country: CA (occurrence: CA)
  Receive Date: 20251020
  Receipt Date: 20251020
  Transmission Date: 20260117
  Serious: Yes (Other)
  Sender: ANI
  Company Number: CA-AstraZeneca-2020SF02720

PATIENT
  Age: 60 Year
  Sex: Female

DRUGS (34)
  1. CANDESARTAN [Suspect]
     Active Substance: CANDESARTAN
     Indication: Migraine
     Dosage: 16 MG QD; 16 MILLIGRAM, UNK
     Route: 048
  2. DESYREL [Suspect]
     Active Substance: TRAZODONE HYDROCHLORIDE
  3. DIHYDROERGOTAMINE [Suspect]
     Active Substance: DIHYDROERGOTAMINE
     Route: 065
  4. GABAPENTIN [Suspect]
     Active Substance: GABAPENTIN
     Route: 065
  5. LAMICTAL [Suspect]
     Active Substance: LAMOTRIGINE
     Route: 065
  6. MAXALT [Suspect]
     Active Substance: RIZATRIPTAN BENZOATE
     Route: 065
  7. METOCLOPRAMIDE HYDROCHLORIDE [Suspect]
     Active Substance: METOCLOPRAMIDE HYDROCHLORIDE
     Route: 065
  8. NAPROXEN [Suspect]
     Active Substance: NAPROXEN
     Route: 065
  9. NARATRIPTAN HYDROCHLORIDE [Suspect]
     Active Substance: NARATRIPTAN HYDROCHLORIDE
     Route: 065
  10. NIFEDIPINE [Suspect]
     Active Substance: NIFEDIPINE
     Route: 065
  11. NORTRIPTYLINE [Suspect]
     Active Substance: NORTRIPTYLINE
     Route: 065
  12. ATENOLOL [Suspect]
     Active Substance: ATENOLOL
     Route: 048
  13. PIZOTYLINE [Suspect]
     Active Substance: PIZOTYLINE
     Route: 065
  14. PREDNISONE [Suspect]
     Active Substance: PREDNISONE
     Route: 065
  15. PROCHLORPERAZINE [Suspect]
     Active Substance: PROCHLORPERAZINE
     Route: 065
  16. TOPIRAMATE [Suspect]
     Active Substance: TOPIRAMATE
     Dosage: 75 MG UNK
     Route: 065
  17. DIVALPROEX SODIUM [Suspect]
     Active Substance: DIVALPROEX SODIUM
     Route: 048
  18. VENLAFAXINE HYDROCHLORIDE [Suspect]
     Active Substance: VENLAFAXINE HYDROCHLORIDE
     Route: 065
  19. VERAPAMIL [Suspect]
     Active Substance: VERAPAMIL HYDROCHLORIDE
     Route: 065
  20. ZOPICLONE [Suspect]
     Active Substance: ZOPICLONE
     Route: 065
  21. FROVATRIPTAN SUCCINATE MONOHYDRATE [Concomitant]
     Route: 065
  22. GRAVOL [Concomitant]
     Active Substance: DIMENHYDRINATE
     Route: 065
  23. BOTULINUM TOXIN TYPE A [Concomitant]
     Active Substance: BOTULINUM TOXIN TYPE A
     Dosage: 20 MG UNK
     Route: 065
  24. VALPROATE SODIUM [Concomitant]
     Active Substance: VALPROATE SODIUM
     Route: 065
  25. TENORMIN [Concomitant]
     Active Substance: ATENOLOL
     Route: 065
  26. TYLENOL [Concomitant]
     Active Substance: ACETAMINOPHEN
     Route: 065
  27. ALLOPURINOL [Concomitant]
     Active Substance: ALLOPURINOL
     Route: 065
  28. PROPRANOLOL [Suspect]
     Active Substance: PROPRANOLOL HYDROCHLORIDE
     Dosage: 80 MG DAILY / UNK / 40 MG BID / 40 MG DAILY / 40 MG Q12H
     Route: 065
  29. ELAVIL [Concomitant]
     Active Substance: AMITRIPTYLINE HYDROCHLORIDE
     Dosage: 20 MG UNK
     Route: 065
  30. PROPRANOLOL HYDROCHLORIDE [Suspect]
     Active Substance: PROPRANOLOL HYDROCHLORIDE
     Dosage: 80 MG DAILY / UNK / 40 MG BID / 40 MG DAILY / 40 MG Q12H
     Route: 065
  31. AIMOVIG [Suspect]
     Active Substance: ERENUMAB-AOOE
     Dosage: UNKNOWN DOSE AND FREQUENCY/ ERENUMAB GENERIC
     Route: 065
  32. AMLODIPINE [Suspect]
     Active Substance: AMLODIPINE BESYLATE
     Route: 065
  33. CLONIDINE [Suspect]
     Active Substance: CLONIDINE
     Route: 065
  34. CORGARD [Suspect]
     Active Substance: NADOLOL
     Route: 065

REACTIONS (18)
  - Diarrhoea [Unknown]
  - Neovascularisation [Unknown]
  - Paradoxical drug reaction [Unknown]
  - Weight decreased [Unknown]
  - Drug ineffective [Unknown]
  - Treatment failure [Unknown]
  - Drug ineffective for unapproved indication [Unknown]
  - Product use in unapproved indication [Unknown]
  - Off label use [Unknown]
  - Product use issue [Unknown]
  - Dyspepsia [Unknown]
  - Dyspnoea [Unknown]
  - Nausea [Unknown]
  - Anuria [Unknown]
  - Cough [Unknown]
  - Abdominal pain [Unknown]
  - Extrapyramidal disorder [Unknown]
  - Migraine [Unknown]
